FAERS Safety Report 9876237 (Version 1)
Quarter: 2014Q1

REPORT INFORMATION
  Report Type: Spontaneous
  Country: SE (occurrence: SE)
  Receive Date: 20140206
  Receipt Date: 20140206
  Transmission Date: 20141002
  Serious: Yes (Other)
  Sender: FDA-Public Use
  Company Number: PHHY2014SE013622

PATIENT
  Age: 57 Year
  Sex: Female

DRUGS (1)
  1. ACLASTA [Suspect]
     Dosage: UNK
     Route: 042

REACTIONS (4)
  - Syncope [Unknown]
  - Conjunctivitis [Unknown]
  - Pyrexia [Unknown]
  - Myalgia [Unknown]
